FAERS Safety Report 8839756 (Version 1)
Quarter: 2012Q4

REPORT INFORMATION
  Report Type: 
  Country: US (occurrence: US)
  Receive Date: 20121015
  Receipt Date: 20121015
  Transmission Date: 20130627
  Serious: Yes (Hospitalization, Other)
  Sender: FDA-Public Use
  Company Number: US-VERTEX PHARMACEUTICAL INC.-AE-2012-010613

PATIENT
  Sex: Male

DRUGS (3)
  1. INCIVEK [Suspect]
     Indication: HEPATITIS C
     Route: 048
     Dates: start: 201204, end: 201207
  2. PEGINTERFERON [Suspect]
     Indication: HEPATITIS C
     Dates: start: 201204, end: 201207
  3. RIBAVIRIN [Suspect]
     Indication: HEPATITIS C
     Dates: start: 201204, end: 201207

REACTIONS (2)
  - Rash generalised [Recovered/Resolved]
  - Pyrexia [Recovered/Resolved]
